FAERS Safety Report 16943062 (Version 7)
Quarter: 2021Q3

REPORT INFORMATION
  Report Type: Report from Study
  Country: JP (occurrence: JP)
  Receive Date: 20191021
  Receipt Date: 20210713
  Transmission Date: 20211014
  Serious: Yes (Other)
  Sender: FDA-Public Use
  Company Number: PHJP2018JP018965

PATIENT
  Age: 31 Year
  Sex: Female

DRUGS (7)
  1. MEKINIST [Suspect]
     Active Substance: TRAMETINIB DIMETHYL SULFOXIDE
     Indication: NON-SMALL CELL LUNG CANCER
     Dosage: 1.5 MG, QD
     Route: 048
     Dates: start: 20180803, end: 20180809
  2. MEKINIST [Suspect]
     Active Substance: TRAMETINIB DIMETHYL SULFOXIDE
     Dosage: 1 MG
     Route: 048
     Dates: start: 20180810
  3. TAFINLAR [Suspect]
     Active Substance: DABRAFENIB MESYLATE
     Indication: LUNG ADENOCARCINOMA STAGE III
     Dosage: 300 MG, QD
     Route: 048
     Dates: start: 20180706, end: 20180720
  4. MEKINIST [Suspect]
     Active Substance: TRAMETINIB DIMETHYL SULFOXIDE
     Indication: LUNG ADENOCARCINOMA STAGE III
     Dosage: 2 MG, QD
     Route: 048
     Dates: start: 20180706, end: 20180720
  5. TAFINLAR [Suspect]
     Active Substance: DABRAFENIB MESYLATE
     Indication: NON-SMALL CELL LUNG CANCER
     Dosage: 200 MG, QD
     Route: 048
     Dates: start: 20180803, end: 20180809
  6. TAFINLAR [Suspect]
     Active Substance: DABRAFENIB MESYLATE
     Dosage: 150 MG
     Route: 048
     Dates: start: 20180810
  7. KEYTRUDA [Suspect]
     Active Substance: PEMBROLIZUMAB
     Indication: LUNG ADENOCARCINOMA
     Dosage: UNK
     Route: 065
     Dates: start: 20180123, end: 20180614

REACTIONS (10)
  - Rhabdomyolysis [Recovering/Resolving]
  - Liver disorder [Recovered/Resolved]
  - Erythema nodosum [Recovering/Resolving]
  - Arthralgia [Recovered/Resolved]
  - Vomiting [Recovering/Resolving]
  - Blood creatine phosphokinase increased [Recovered/Resolved]
  - Rash [Recovered/Resolved]
  - Vertigo [Recovering/Resolving]
  - Myalgia [Recovered/Resolved]
  - Pyrexia [Recovered/Resolved]

NARRATIVE: CASE EVENT DATE: 20180720
